FAERS Safety Report 5269682-9 (Version None)
Quarter: 2007Q1

REPORT INFORMATION
  Report Type: 
  Country: None (occurrence: None)
  Receive Date: 20070320
  Receipt Date: 20070316
  Transmission Date: 20070707
  Serious: Yes (Hospitalization)
  Sender: FDA-Public Use
  Company Number: AU-BRISTOL-MYERS SQUIBB COMPANY-13717004

PATIENT
  Age: 55 Year
  Sex: Female

DRUGS (8)
  1. CISPLATIN [Suspect]
     Indication: GASTRIC CANCER
     Route: 041
     Dates: start: 20060710, end: 20060806
  2. FLUOROURACIL [Suspect]
     Indication: GASTRIC CANCER
     Route: 041
     Dates: start: 20060710, end: 20060806
  3. NEXIUM [Concomitant]
     Indication: GASTROOESOPHAGEAL REFLUX DISEASE
     Route: 048
     Dates: start: 20060601
  4. ZOLOFT [Concomitant]
     Indication: DEPRESSION
     Route: 048
     Dates: start: 20040101
  5. DEXAMETHASONE [Concomitant]
     Indication: NAUSEA
     Route: 048
     Dates: start: 20060612, end: 20061215
  6. MAXOLON [Concomitant]
     Indication: NAUSEA
     Route: 048
     Dates: start: 20060612, end: 20061215
  7. GRANISETRON [Concomitant]
     Indication: NAUSEA
     Route: 048
     Dates: start: 20060612, end: 20061215
  8. PROCHLORPERAZINE [Concomitant]
     Indication: NAUSEA
     Route: 048
     Dates: start: 20060710, end: 20060712

REACTIONS (1)
  - PULMONARY EMBOLISM [None]
